FAERS Safety Report 11930179 (Version 1)
Quarter: 2016Q1

REPORT INFORMATION
  Report Type: Spontaneous
  Country: US (occurrence: None)
  Receive Date: 20160120
  Receipt Date: 20160120
  Transmission Date: 20160526
  Serious: Yes (Hospitalization)
  Sender: FDA-Public Use
  Company Number: None

PATIENT
  Age: 61 Year
  Sex: Male
  Weight: 100.2 kg

DRUGS (1)
  1. NIACIN (SLO-NIACIN) [Suspect]
     Active Substance: DIETARY SUPPLEMENT
     Route: 048
     Dates: start: 20150808, end: 20150809

REACTIONS (2)
  - Transaminases increased [None]
  - Hepatic enzyme increased [None]

NARRATIVE: CASE EVENT DATE: 20150808
